FAERS Safety Report 8083585-6 (Version None)
Quarter: 2012Q1

REPORT INFORMATION
  Report Type: 
  Country: None (occurrence: None)
  Receive Date: 20120127
  Receipt Date: 20110127
  Transmission Date: 20120608
  Serious: No
  Sender: FDA-Public Use
  Company Number: US-ABBOTT-11P-163-0700957-00

PATIENT
  Age: 48 Year
  Sex: Female

DRUGS (6)
  1. HUMIRA [Suspect]
     Indication: RHEUMATOID ARTHRITIS
     Dates: start: 20110101
  2. ESTRADIOL [Concomitant]
     Indication: HORMONE REPLACEMENT THERAPY
  3. PLAQUENIL [Concomitant]
     Indication: PRODUCT USED FOR UNKNOWN INDICATION
     Route: 048
  4. OMNARIS [Concomitant]
     Indication: PRODUCT USED FOR UNKNOWN INDICATION
     Dosage: NASAL SPRAY
  5. ZYRTEC [Concomitant]
     Indication: PRODUCT USED FOR UNKNOWN INDICATION
  6. PATANASE [Concomitant]
     Indication: HYPERSENSITIVITY
     Dosage: NASAL SPRAY

REACTIONS (4)
  - CONTUSION [None]
  - SKIN MASS [None]
  - HYPERSENSITIVITY [None]
  - RASH MACULAR [None]
